FAERS Safety Report 6094772-0 (Version None)
Quarter: 2009Q1

REPORT INFORMATION
  Report Type: 
  Country: None (occurrence: None)
  Receive Date: 20090225
  Receipt Date: 20090217
  Transmission Date: 20090719
  Serious: Yes (Hospitalization, Other)
  Sender: FDA-Public Use
  Company Number: 2009SP003768

PATIENT
  Age: 57 Year
  Sex: Male

DRUGS (2)
  1. PEG-INTRON [Suspect]
     Indication: HEPATITIS C
     Dosage: SC
     Route: 058
     Dates: start: 20081108
  2. RIBAVIRIN [Suspect]
     Indication: HEPATITIS C
     Dosage: PO
     Route: 048
     Dates: start: 20081108

REACTIONS (7)
  - CHEST PAIN [None]
  - FATIGUE [None]
  - HAEMOPTYSIS [None]
  - LUNG ABSCESS [None]
  - PNEUMONIA [None]
  - SPUTUM DISCOLOURED [None]
  - WEIGHT DECREASED [None]
